FAERS Safety Report 8362028-9 (Version None)
Quarter: 2012Q2

REPORT INFORMATION
  Report Type: 
  Country: None (occurrence: None)
  Receive Date: 20120515
  Receipt Date: 20120508
  Transmission Date: 20120825
  Serious: Yes (Life-Threatening, Hospitalization, Congenital Anomaly, Other)
  Sender: FDA-Public Use
  Company Number: US-PFIZER INC-2011293436

PATIENT
  Sex: Female

DRUGS (13)
  1. PROMETHAZINE [Concomitant]
     Dosage: 25 MG, UNK
     Route: 064
     Dates: start: 20070508
  2. ZOLOFT [Suspect]
     Indication: POSTPARTUM DEPRESSION
     Dosage: 25 MG, 1X/DAY FOR 7 DAYS
     Route: 064
     Dates: start: 20060504
  3. COLACE [Concomitant]
     Dosage: 100 MG, 2X/DAY
     Route: 064
  4. PERCOCET [Concomitant]
     Dosage: 100 MG, UNK
     Route: 064
     Dates: start: 20070820
  5. ZOLOFT [Suspect]
     Dosage: 50 MG, 1X/DAY
     Route: 064
     Dates: start: 20060101
  6. TERBUTALINE [Concomitant]
     Dosage: 0.25 MG, 3X/DAY, 0.25 MG EVERY 30MINS THRICE DAILY
     Route: 064
     Dates: start: 20070722, end: 20070723
  7. ZOLOFT [Suspect]
     Dosage: 100 MG, 1X/DAY
     Route: 064
     Dates: start: 20060101
  8. IRON [Concomitant]
     Dosage: UNK
     Route: 064
  9. SERAX [Concomitant]
     Indication: INSOMNIA
     Dosage: 10 TO 15 MG, AT BED TIME
     Route: 064
  10. MULTI-VITAMINS [Concomitant]
     Dosage: 1 TABLET, DAILY
     Route: 064
  11. ZOFRAN [Concomitant]
     Dosage: 8 MG, UNK
     Route: 064
     Dates: start: 20070509
  12. BUTORPHANOL [Concomitant]
     Dosage: 2 MG, UNK
     Route: 064
     Dates: start: 20070723
  13. AMBIEN [Concomitant]
     Dosage: 10 MG, UNK
     Route: 064
     Dates: start: 20070910

REACTIONS (13)
  - PATENT DUCTUS ARTERIOSUS [None]
  - MATERNAL EXPOSURE TIMING UNSPECIFIED [None]
  - CARDIOMEGALY [None]
  - PREMATURE BABY [None]
  - HEART DISEASE CONGENITAL [None]
  - TRICUSPID VALVE DISEASE [None]
  - TRICUSPID VALVE INCOMPETENCE [None]
  - FAILURE TO THRIVE [None]
  - CONGENITAL ANOMALY [None]
  - PULMONARY ARTERY ATRESIA [None]
  - GASTROOESOPHAGEAL REFLUX DISEASE [None]
  - ATRIAL SEPTAL DEFECT [None]
  - PULMONARY ARTERY STENOSIS CONGENITAL [None]
